FAERS Safety Report 15440007 (Version 2)
Quarter: 2018Q4

REPORT INFORMATION
  Report Type: Spontaneous
  Country: CH (occurrence: CH)
  Receive Date: 20180928
  Receipt Date: 20181002
  Transmission Date: 20190204
  Serious: Yes (Hospitalization)
  Sender: FDA-Public Use
  Company Number: CH-TEVA-2018-CH-958471

PATIENT
  Sex: Male

DRUGS (1)
  1. ANTABUS [Suspect]
     Active Substance: DISULFIRAM
     Indication: ALCOHOL ABUSE
     Route: 065
     Dates: start: 20180807, end: 20180819

REACTIONS (2)
  - Myalgia [Unknown]
  - Blood creatine phosphokinase increased [Recovered/Resolved]

NARRATIVE: CASE EVENT DATE: 20180819
